FAERS Safety Report 11230071 (Version 2)
Quarter: 2015Q3

REPORT INFORMATION
  Report Type: Report from Study
  Country: GB (occurrence: GB)
  Receive Date: 20150701
  Receipt Date: 20150709
  Transmission Date: 20151125
  Serious: Yes (Other)
  Sender: FDA-Public Use
  Company Number: GB-AUROBINDO-AUR-APL-2015-05526

PATIENT
  Age: 19 Year
  Sex: Female

DRUGS (2)
  1. LEVETIRACETAM. [Suspect]
     Active Substance: LEVETIRACETAM
     Indication: SEIZURE
     Dosage: 1500 MG, DAILY
     Route: 065
  2. LACOSAMIDE [Interacting]
     Active Substance: LACOSAMIDE
     Indication: SEIZURE
     Dosage: 100 MG, DAILY
     Route: 065

REACTIONS (1)
  - Angioedema [Recovered/Resolved]
